FAERS Safety Report 8457411-7 (Version None)
Quarter: 2012Q2

REPORT INFORMATION
  Report Type: 
  Country: None (occurrence: None)
  Receive Date: 20120621
  Receipt Date: 20120618
  Transmission Date: 20120825
  Serious: Yes (Death)
  Sender: FDA-Public Use
  Company Number: CHNY2009FR02650

PATIENT
  Sex: Male

DRUGS (7)
  1. SCOPOLAMINE [Suspect]
     Dosage: UNK
     Route: 062
     Dates: start: 20090306
  2. ATARAX [Suspect]
     Indication: INSOMNIA
     Dosage: 1 DF, QD
     Route: 042
     Dates: start: 20090413, end: 20090512
  3. SOLU-MEDROL [Suspect]
     Indication: DECREASED APPETITE
     Dosage: 1 DF, QD
     Route: 042
     Dates: start: 20090413, end: 20090512
  4. PAROXETINE HCL [Suspect]
     Indication: DEPRESSION
     Dosage: 1 DF, QD
     Route: 048
     Dates: start: 20090412, end: 20090512
  5. NEXIUM [Suspect]
     Indication: OESOPHAGITIS
     Dosage: 40 MG, QD
     Route: 042
     Dates: start: 20090413, end: 20090420
  6. MORPHINE SULFATE [Suspect]
     Dosage: 10 MG, QD
     Route: 048
     Dates: start: 20090217
  7. DURAGESIC-100 [Suspect]
     Dosage: 1 DF, QD
     Route: 062
     Dates: start: 20090414, end: 20090512

REACTIONS (3)
  - THROMBOCYTOPENIA [None]
  - MALNUTRITION [None]
  - ANAEMIA [None]
